FAERS Safety Report 8216953-X (Version None)
Quarter: 2012Q1

REPORT INFORMATION
  Report Type: 
  Country: None (occurrence: None)
  Receive Date: 20120319
  Receipt Date: 20120306
  Transmission Date: 20120608
  Serious: Yes (Other)
  Sender: FDA-Public Use
  Company Number: JP-BRISTOL-MYERS SQUIBB COMPANY-16444754

PATIENT

DRUGS (3)
  1. EMEND [Concomitant]
  2. VEPESID [Suspect]
  3. CISPLATIN [Suspect]

REACTIONS (1)
  - ARRHYTHMIA [None]
